FAERS Safety Report 13132023 (Version 13)
Quarter: 2018Q3

REPORT INFORMATION
  Report Type: Spontaneous
  Country: US (occurrence: US)
  Receive Date: 20170119
  Receipt Date: 20180810
  Transmission Date: 20181010
  Serious: Yes (Hospitalization)
  Sender: FDA-Public Use
  Company Number: US-ACTELION-A-NJ2017-148446

PATIENT
  Age: 45 Year
  Sex: Female

DRUGS (34)
  1. LOVENOX [Suspect]
     Active Substance: ENOXAPARIN SODIUM
     Indication: PRODUCT USED FOR UNKNOWN INDICATION
     Route: 065
  2. LEVEMIR [Concomitant]
     Active Substance: INSULIN DETEMIR
     Dosage: 25 UNK, QPM
  3. BUSPIRONE [Concomitant]
     Active Substance: BUSPIRONE HYDROCHLORIDE
     Dosage: 10 MG, AT 8 AM AND NOON
     Route: 048
  4. ANTIVERT [Concomitant]
     Active Substance: MECLIZINE HYDROCHLORIDE
     Indication: VERTIGO
  5. OXYGEN. [Concomitant]
     Active Substance: OXYGEN
     Dosage: 6?8L VIA NC
  6. TORSEMIDE. [Concomitant]
     Active Substance: TORSEMIDE
     Dosage: 80 MG, UNK
  7. KCL [Concomitant]
     Active Substance: POTASSIUM CHLORIDE
     Dosage: 20 MEQ, UNK
  8. PROVENTIL [Concomitant]
     Active Substance: ALBUTEROL
     Indication: DYSPNOEA
  9. ADVAIR HFA [Concomitant]
     Active Substance: FLUTICASONE PROPIONATE\SALMETEROL XINAFOATE
     Dosage: 2 PUFF, BID
  10. ANTIVERT [Concomitant]
     Active Substance: MECLIZINE HYDROCHLORIDE
     Indication: DIZZINESS
     Dosage: 25 MG, TID PRN
     Route: 048
  11. PRILOSEC [Concomitant]
     Active Substance: OMEPRAZOLE MAGNESIUM
     Dosage: 20 MG, BID
  12. SPIRONOLACTONE. [Concomitant]
     Active Substance: SPIRONOLACTONE
     Dosage: 75 MG, UNK
  13. TORSEMIDE. [Concomitant]
     Active Substance: TORSEMIDE
     Dosage: 60 MG, QPM
  14. FLUTICASONE W/SALMETEROL [Concomitant]
     Active Substance: FLUTICASONE PROPIONATE\SALMETEROL XINAFOATE
     Dosage: UNK, BID
  15. PAROXETINE. [Concomitant]
     Active Substance: PAROXETINE
  16. FERREX [Concomitant]
     Active Substance: FERRIC POLYSACCHARIDE COMPLEX
     Dosage: 150 MG, UNK
     Route: 048
  17. ALBUTEROL. [Concomitant]
     Active Substance: ALBUTEROL
     Dosage: Q6H, PRN
  18. OPSUMIT [Suspect]
     Active Substance: MACITENTAN
     Indication: PULMONARY ARTERIAL HYPERTENSION
     Dosage: 10 MG, QD
     Route: 048
     Dates: start: 20160326
  19. BUSPIRONE [Concomitant]
     Active Substance: BUSPIRONE HYDROCHLORIDE
     Dosage: 20 MG, QPM
     Route: 048
  20. NEURONTIN [Concomitant]
     Active Substance: GABAPENTIN
     Indication: NEURALGIA
     Dosage: 600 MG, TID
     Route: 048
  21. MAG?OX [Concomitant]
     Active Substance: MAGNESIUM OXIDE
     Dosage: 400 MG, TID
     Route: 048
  22. METOLAZONE. [Concomitant]
     Active Substance: METOLAZONE
     Dosage: 5 MG, UNK
  23. MIDODRINE [Concomitant]
     Active Substance: MIDODRINE
     Dosage: 10 MG, TID
  24. K?DUR [Concomitant]
     Active Substance: POTASSIUM CHLORIDE
     Dosage: 40 MEQ, BID
     Route: 048
  25. ASA [Concomitant]
     Active Substance: ASPIRIN
  26. ATORVASTATIN [Concomitant]
     Active Substance: ATORVASTATIN
  27. QUETIAPINE. [Concomitant]
     Active Substance: QUETIAPINE
  28. PROAMATINE [Concomitant]
     Active Substance: MIDODRINE HYDROCHLORIDE
     Dosage: 10 MG, BID
  29. REGULAR INSULIN NOVO NORDISK [Concomitant]
     Active Substance: INSULIN HUMAN
     Dosage: 8 UNK, QID
  30. APIXABAN [Concomitant]
     Active Substance: APIXABAN
     Dosage: 5 MG, BID
  31. PROTONIX [Concomitant]
     Active Substance: PANTOPRAZOLE SODIUM
  32. PROVENTIL [Concomitant]
     Active Substance: ALBUTEROL
     Indication: WHEEZING
     Dosage: 2.5 MG, Q4HRS PRN
  33. VENTOLIN [Concomitant]
     Active Substance: ALBUTEROL SULFATE
     Dosage: 2 PUFF, Q4HRS PRN
  34. METOPROLOL SUCCINATE. [Concomitant]
     Active Substance: METOPROLOL SUCCINATE
     Dosage: 50 MG, UNK

REACTIONS (22)
  - Drug hypersensitivity [Unknown]
  - Abdominal pain [Not Recovered/Not Resolved]
  - Chest pain [Unknown]
  - Blood potassium decreased [Recovered/Resolved]
  - Fluid retention [Recovered/Resolved]
  - Weight increased [Recovered/Resolved]
  - Hypotension [Recovered/Resolved]
  - Right ventricular failure [Unknown]
  - Atrial fibrillation [Recovered/Resolved]
  - Abdominal distension [Not Recovered/Not Resolved]
  - Acute respiratory failure [Recovered/Resolved]
  - Dyspnoea exertional [Recovered/Resolved]
  - Dyspnoea [Unknown]
  - Left ventricular dysfunction [Recovered/Resolved]
  - Treatment noncompliance [Unknown]
  - Pulmonary hypertension [Recovered/Resolved]
  - Fluid overload [Recovered/Resolved]
  - Palpitations [Unknown]
  - Diet noncompliance [Recovered/Resolved]
  - Acute kidney injury [Recovered/Resolved]
  - Pulmonary veno-occlusive disease [Recovered/Resolved]
  - Dizziness [Unknown]

NARRATIVE: CASE EVENT DATE: 20170102
